FAERS Safety Report 7002961-3 (Version None)
Quarter: 2010Q3

REPORT INFORMATION
  Report Type: 
  Country: None (occurrence: None)
  Receive Date: 20100920
  Receipt Date: 20100915
  Transmission Date: 20110219
  Serious: Yes (Death, Hospitalization)
  Sender: FDA-Public Use
  Company Number: PHHY2010NL43055

PATIENT
  Sex: Female

DRUGS (18)
  1. ZOMETA [Suspect]
     Dosage: 4 MG/ 5 ML
     Route: 042
     Dates: start: 20090402
  2. ZOMETA [Suspect]
     Dosage: 4 MG/ 5 ML
     Route: 042
     Dates: start: 20090427
  3. ZOMETA [Suspect]
     Dosage: 4 MG/ 5 ML
     Route: 042
     Dates: start: 20090525
  4. ZOMETA [Suspect]
     Dosage: 4 MG/ 5 ML
     Route: 042
     Dates: start: 20090623
  5. ZOMETA [Suspect]
     Dosage: 4 MG/ 5 ML
     Route: 042
     Dates: start: 20090720
  6. ZOMETA [Suspect]
     Dosage: 4 MG/ 5 ML
     Route: 042
     Dates: start: 20090817
  7. ZOMETA [Suspect]
     Dosage: 4 MG/ 5 ML
     Route: 042
     Dates: start: 20090917
  8. ZOMETA [Suspect]
     Dosage: 4 MG/ 5 ML
     Dates: start: 20091013
  9. ZOMETA [Suspect]
     Dosage: 4 MG/ 5 ML
     Dates: start: 20091117
  10. ZOMETA [Suspect]
     Dosage: 4 MG/ 5 ML
     Route: 042
     Dates: start: 20091215
  11. ZOMETA [Suspect]
     Dosage: 4 MG/ 5 ML
     Dates: start: 20100115
  12. ZOMETA [Suspect]
     Dosage: 4 MG/ 5 ML
     Route: 042
     Dates: start: 20100216
  13. ZOMETA [Suspect]
     Dosage: 4 MG/ 5 ML
     Route: 042
     Dates: start: 20100315
  14. ZOMETA [Suspect]
     Dosage: 4 MG/ 5 ML
     Route: 042
     Dates: start: 20100409
  15. ZOMETA [Suspect]
     Dosage: 4 MG/ 5 ML
     Dates: start: 20100505
  16. ZOMETA [Suspect]
     Dosage: 4 MG/ 5 ML
     Dates: start: 20100602
  17. ZOMETA [Suspect]
     Dosage: 4 MG/ 5 ML
     Dates: start: 20100629
  18. ZOMETA [Suspect]
     Dosage: 4 MG/ 5 ML
     Route: 042
     Dates: start: 20100727

REACTIONS (3)
  - DEATH [None]
  - DRUG EFFECT DECREASED [None]
  - DYSPNOEA [None]
